FAERS Safety Report 20335636 (Version 5)
Quarter: 2023Q4

REPORT INFORMATION
  Report Type: Spontaneous
  Country: AR (occurrence: AR)
  Receive Date: 20220114
  Receipt Date: 20231026
  Transmission Date: 20240110
  Serious: Yes (Other)
  Sender: FDA-Public Use
  Company Number: AR-PFIZER INC-202200015596

PATIENT
  Sex: Female

DRUGS (1)
  1. NEURONTIN [Suspect]
     Active Substance: GABAPENTIN
     Indication: Product used for unknown indication
     Dosage: UNK (GABAPENTIN 300 FOR 10 YEARS)
     Route: 065
     Dates: start: 2008, end: 2018

REACTIONS (4)
  - Coeliac disease [Unknown]
  - Poisoning [Unknown]
  - Gastrointestinal injury [Unknown]
  - Product prescribing issue [Unknown]
